FAERS Safety Report 8455219-X (Version None)
Quarter: 2012Q2

REPORT INFORMATION
  Report Type: 
  Country: None (occurrence: None)
  Receive Date: 20120621
  Receipt Date: 20120616
  Transmission Date: 20120825
  Serious: Yes (Hospitalization)
  Sender: FDA-Public Use
  Company Number: FR-ASTELLAS-2012EU004243

PATIENT
  Sex: Male
  Weight: 98 kg

DRUGS (9)
  1. PREDNISONE TAB [Concomitant]
     Dosage: 7.5 MG, UNKNOWN/D
     Route: 048
     Dates: start: 20080923
  2. CALCIUM CARBONATE [Concomitant]
     Dosage: 500 MG, UNKNOWN/D
     Route: 048
  3. TRAMADOL HCL [Concomitant]
     Dosage: 50 MG, BID
     Route: 048
     Dates: start: 20090928
  4. TACROLIMUS [Suspect]
     Indication: RENAL TRANSPLANT
     Dosage: 3 MG, UID/QD
     Route: 048
     Dates: start: 20110823
  5. NEXIUM [Concomitant]
     Dosage: 40 MG, UNKNOWN/D
     Route: 048
  6. ACETAMINOPHEN [Concomitant]
     Dosage: 1 G, TID
     Route: 065
  7. MYCOPHENOLATE MOFETIL [Suspect]
     Indication: RENAL TRANSPLANT
     Dosage: 2 G, UID/QD
     Route: 048
     Dates: start: 20080923
  8. LESCOL [Concomitant]
     Dosage: 20 MG, UID/QD
     Route: 048
  9. KAYEXALATE [Concomitant]
     Dosage: 1 DF, UNKNOWN/D
     Route: 065

REACTIONS (1)
  - HLA MARKER STUDY POSITIVE [None]
